FAERS Safety Report 5182981-4 (Version None)
Quarter: 2006Q4

REPORT INFORMATION
  Report Type: 
  Country: None (occurrence: None)
  Receive Date: 20060919
  Receipt Date: 20060803
  Transmission Date: 20070319
  Serious: No
  Sender: FDA-Public Use
  Company Number: 2006US001776

PATIENT
  Age: 83 Year
  Sex: Male

DRUGS (14)
  1. VESICARE [Suspect]
     Indication: HYPERTONIC BLADDER
     Dosage: 5 MG, UID/QD, ORAL
     Route: 048
     Dates: start: 20060701
  2. NIASPAN [Concomitant]
  3. WARFARIN SODIUM [Concomitant]
  4. STARLIX [Concomitant]
  5. ZETIA [Concomitant]
  6. DOXAZOSIN MESYLATE [Concomitant]
  7. MOVE FREE (GLUCOSAMINE, CHONDROITIN SULFATE) [Concomitant]
  8. TYLENOL (DEXTROMETHORPHAN HYDROBROMIDE, PSEUDOEPHEDRINE HYDROCHLORIDE [Concomitant]
  9. ASCORBIC ACID [Concomitant]
  10. UNISOM [Concomitant]
  11. HYDROCHLOROTHIAZIDE [Concomitant]
  12. METOPROLOL SUCCINATE [Concomitant]
  13. ENALAPRIL (ENALAPRIL MALATE) [Concomitant]
  14. ALLOPURINOL SODIUM [Concomitant]

REACTIONS (1)
  - DRUG INEFFECTIVE [None]
